FAERS Safety Report 6412780-4 (Version None)
Quarter: 2009Q4

REPORT INFORMATION
  Report Type: 
  Country: None (occurrence: None)
  Receive Date: 20091023
  Receipt Date: 20091013
  Transmission Date: 20100525
  Serious: Yes (Other)
  Sender: FDA-Public Use
  Company Number: MX-ELI_LILLY_AND_COMPANY-MX200905002371

PATIENT
  Age: 53 Year
  Sex: Female

DRUGS (1)
  1. EVISTA [Suspect]
     Indication: FIBROCYSTIC BREAST DISEASE
     Dosage: UNK, UNKNOWN
     Route: 065
     Dates: start: 20080501, end: 20080801

REACTIONS (1)
  - JAUNDICE [None]
